FAERS Safety Report 19950964 (Version 1)
Quarter: 2021Q4

REPORT INFORMATION
  Report Type: Spontaneous
  Country: US (occurrence: US)
  Receive Date: 20211013
  Receipt Date: 20211013
  Transmission Date: 20220303
  Serious: Yes (Other)
  Sender: FDA-Public Use
  Company Number: US-PFIZER INC-2021718283

PATIENT
  Age: 58 Year
  Sex: Male

DRUGS (2)
  1. BRAFTOVI [Suspect]
     Active Substance: ENCORAFENIB
     Indication: Metastatic malignant melanoma
     Dosage: 450 MG
  2. MEKTOVI [Suspect]
     Active Substance: BINIMETINIB
     Indication: Metastatic malignant melanoma
     Dosage: 45 MG

REACTIONS (5)
  - Second primary malignancy [Unknown]
  - Hepatic cancer [Unknown]
  - Cholangiocarcinoma [Unknown]
  - Brain neoplasm malignant [Unknown]
  - Lung neoplasm malignant [Unknown]
